FAERS Safety Report 19475460 (Version 1)
Quarter: 2021Q2

REPORT INFORMATION
  Report Type: Spontaneous
  Country: US (occurrence: US)
  Receive Date: 20210630
  Receipt Date: 20210630
  Transmission Date: 20210717
  Serious: Yes (Hospitalization, Other)
  Sender: FDA-Public Use
  Company Number: US-AUROBINDO-AUR-APL-2014-00498

PATIENT
  Age: 51 Year
  Sex: Female

DRUGS (1)
  1. AMOXICILLIN. [Suspect]
     Active Substance: AMOXICILLIN
     Indication: OTITIS MEDIA
     Dosage: UNK
     Route: 065

REACTIONS (11)
  - Coagulation factor IX level increased [Unknown]
  - Swollen tongue [Unknown]
  - Dyspnoea [Unknown]
  - Ecchymosis [Unknown]
  - Activated partial thromboplastin time prolonged [Unknown]
  - Angioedema [Unknown]
  - Injection site haemorrhage [Unknown]
  - Obstructive airways disorder [Unknown]
  - Coagulation factor VIII level decreased [Recovered/Resolved]
  - Acquired haemophilia [Unknown]
  - Tongue haematoma [Unknown]
